FAERS Safety Report 7548752-6 (Version None)
Quarter: 2011Q2

REPORT INFORMATION
  Report Type: 
  Country: None (occurrence: None)
  Receive Date: 20110615
  Receipt Date: 20110531
  Transmission Date: 20111010
  Serious: No
  Sender: FDA-Public Use
  Company Number: JP-ELI_LILLY_AND_COMPANY-JP201104006610

PATIENT
  Age: 51 Year
  Sex: Female

DRUGS (3)
  1. CYMBALTA [Suspect]
     Indication: DEPRESSION
     Dosage: 20 MG, QD
     Route: 048
     Dates: start: 20110124, end: 20110318
  2. AMLODIPINE [Concomitant]
     Dosage: UNK
     Dates: start: 20010101
  3. DILTIAZEM HCL [Concomitant]
     Dosage: UNK
     Dates: start: 20010101

REACTIONS (1)
  - LIVER DISORDER [None]
